FAERS Safety Report 14740977 (Version 2)
Quarter: 2018Q2

REPORT INFORMATION
  Report Type: Spontaneous
  Country: US (occurrence: US)
  Receive Date: 20180410
  Receipt Date: 20180503
  Transmission Date: 20180711
  Serious: No
  Sender: FDA-Public Use
  Company Number: PHHY2018US061113

PATIENT
  Sex: Female

DRUGS (1)
  1. SYSTANE ULTRA [Suspect]
     Active Substance: POLYETHYLENE GLYCOL 400\PROPYLENE GLYCOL
     Indication: EYE IRRITATION
     Route: 047

REACTIONS (3)
  - Eye swelling [Recovered/Resolved]
  - Eye irritation [Recovered/Resolved]
  - Visual impairment [Recovered/Resolved]
